FAERS Safety Report 6505903-X (Version None)
Quarter: 2009Q4

REPORT INFORMATION
  Report Type: 
  Country: None (occurrence: None)
  Receive Date: 20091217
  Receipt Date: 20091217
  Transmission Date: 20100525
  Serious: No
  Sender: FDA-Public Use
  Company Number: None

PATIENT
  Age: 84 Year
  Sex: Female
  Weight: 64.4108 kg

DRUGS (1)
  1. FORTEO [Suspect]
     Indication: BONE DENSITY DECREASED
     Dosage: 20 MCG PER DOSE DAILY SUBCUE INJECTION
     Route: 058
     Dates: start: 20090801, end: 20091101

REACTIONS (5)
  - ARTHRALGIA [None]
  - DIZZINESS [None]
  - HEART RATE INCREASED [None]
  - MUSCLE SPASMS [None]
  - RASH [None]
